FAERS Safety Report 24718033 (Version 1)
Quarter: 2024Q4

REPORT INFORMATION
  Report Type: Spontaneous
  Country: IT (occurrence: IT)
  Receive Date: 20241210
  Receipt Date: 20241210
  Transmission Date: 20250114
  Serious: Yes (Life-Threatening)
  Sender: MYLAN
  Company Number: None

PATIENT
  Sex: Female
  Weight: 3.3 kg

DRUGS (1)
  1. REMIFENTANIL [Suspect]
     Active Substance: REMIFENTANIL
     Indication: Product used for unknown indication
     Dosage: 0.5 MICROGRAM/KILOGRAM, QMINUTE
     Route: 042
     Dates: start: 20240507, end: 20240530

REACTIONS (3)
  - Neonatal hypoxia [Recovered/Resolved]
  - Apnoea [Recovered/Resolved]
  - Chest wall rigidity [Recovered/Resolved]

NARRATIVE: CASE EVENT DATE: 20240527
